FAERS Safety Report 10392027 (Version 1)
Quarter: 2014Q3

REPORT INFORMATION
  Report Type: Spontaneous
  Country: JP (occurrence: JP)
  Receive Date: 20140819
  Receipt Date: 20140819
  Transmission Date: 20150326
  Serious: Yes (Other)
  Sender: FDA-Public Use
  Company Number: PHHY2011JP122345

PATIENT
  Age: 30 Year
  Sex: Male

DRUGS (1)
  1. EXJADE [Suspect]
     Active Substance: DEFERASIROX
     Indication: APLASTIC ANAEMIA
     Dosage: 500 MG, DAILY
     Dates: start: 201102

REACTIONS (3)
  - Diabetes mellitus [Unknown]
  - Platelet disorder [Unknown]
  - Serum ferritin increased [Unknown]
